FAERS Safety Report 16263061 (Version 2)
Quarter: 2020Q1

REPORT INFORMATION
  Report Type: Spontaneous
  Country: GB (occurrence: GB)
  Receive Date: 20190502
  Receipt Date: 20200327
  Transmission Date: 20200409
  Serious: Yes (Hospitalization)
  Sender: FDA-Public Use
  Company Number: GB-TEVA-2019-GB-1043442

PATIENT
  Age: 59 Year
  Sex: Female

DRUGS (14)
  1. ADCAL-D3 [Concomitant]
     Active Substance: CALCIUM CARBONATE\CHOLECALCIFEROL
  2. SIMVASTATIN. [Concomitant]
     Active Substance: SIMVASTATIN
  3. ESLICARBAZEPINE [Concomitant]
     Active Substance: ESLICARBAZEPINE
  4. AMANTADINE. [Concomitant]
     Active Substance: AMANTADINE HYDROCHLORIDE
  5. PREGABALIN. [Suspect]
     Active Substance: PREGABALIN
     Route: 065
  6. HYDROXOCOBALAMIN [Concomitant]
     Active Substance: HYDROXOCOBALAMIN
  7. NALOXONE [Concomitant]
     Active Substance: NALOXONE
  8. BACLOFEN. [Suspect]
     Active Substance: BACLOFEN
     Indication: MULTIPLE SCLEROSIS
     Dosage: 60 MILLIGRAM DAILY; 20MG IN THE MORNING, 10MG  AT MIDDAY, 30MG AT NIGHT.
     Route: 048
     Dates: start: 20190101, end: 20190327
  9. MOVICOL [Concomitant]
     Active Substance: POLYETHYLENE GLYCOL 3350\POTASSIUM CHLORIDE\SODIUM BICARBONATE\SODIUM CHLORIDE
  10. RIVAROXABAN [Concomitant]
     Active Substance: RIVAROXABAN
  11. TAZOCIN [Concomitant]
     Active Substance: PIPERACILLIN SODIUM\TAZOBACTAM SODIUM
  12. CODEINE [Suspect]
     Active Substance: CODEINE
     Route: 065
  13. SERTRALINE [Concomitant]
     Active Substance: SERTRALINE HYDROCHLORIDE
  14. BISOPROLOL [Concomitant]
     Active Substance: BISOPROLOL

REACTIONS (10)
  - Hypovolaemia [Recovering/Resolving]
  - Disorientation [Recovering/Resolving]
  - Delirium [Recovering/Resolving]
  - Hyporesponsive to stimuli [Recovering/Resolving]
  - Acute kidney injury [Recovering/Resolving]
  - Urosepsis [Recovering/Resolving]
  - Hyponatraemia [Recovering/Resolving]
  - Crepitations [Recovering/Resolving]
  - Nystagmus [Recovering/Resolving]
  - Somnolence [Recovering/Resolving]

NARRATIVE: CASE EVENT DATE: 20190326
